FAERS Safety Report 5820690-6 (Version None)
Quarter: 2008Q3

REPORT INFORMATION
  Report Type: 
  Country: None (occurrence: None)
  Receive Date: 20080724
  Receipt Date: 20080218
  Transmission Date: 20090109
  Serious: No
  Sender: FDA-Public Use
  Company Number: A0710255A

PATIENT
  Age: 67 Year
  Sex: Male

DRUGS (4)
  1. AVANDIA [Suspect]
     Route: 048
     Dates: start: 20080101
  2. DIURETIC [Concomitant]
  3. HIGH BLOOD PRESSURE PILL [Concomitant]
  4. STATINS [Concomitant]

REACTIONS (5)
  - COUGH [None]
  - DYSPNOEA [None]
  - JOINT SWELLING [None]
  - PRURITUS [None]
  - RASH ERYTHEMATOUS [None]
